FAERS Safety Report 21615640 (Version 1)
Quarter: 2022Q4

REPORT INFORMATION
  Report Type: Spontaneous
  Country: CN (occurrence: None)
  Receive Date: 20221118
  Receipt Date: 20221118
  Transmission Date: 20230113
  Serious: Yes (Other)
  Sender: FDA-Public Use
  Company Number: 2022A373836

PATIENT
  Age: 3627 Week
  Sex: Male

DRUGS (2)
  1. TICAGRELOR [Suspect]
     Active Substance: TICAGRELOR
     Indication: Coronary artery disease
     Route: 048
     Dates: start: 20221028, end: 20221029
  2. TICAGRELOR [Suspect]
     Active Substance: TICAGRELOR
     Indication: Angina pectoris
     Route: 048
     Dates: start: 20221028, end: 20221029

REACTIONS (3)
  - Erythema [Recovering/Resolving]
  - Skin swelling [Recovering/Resolving]
  - Pruritus [Recovering/Resolving]

NARRATIVE: CASE EVENT DATE: 20221029
